FAERS Safety Report 7675302-6 (Version None)
Quarter: 2011Q3

REPORT INFORMATION
  Report Type: 
  Country: None (occurrence: None)
  Receive Date: 20110810
  Receipt Date: 20110804
  Transmission Date: 20111222
  Serious: Yes (Life-Threatening, Hospitalization, Other)
  Sender: FDA-Public Use
  Company Number: GB-ELI_LILLY_AND_COMPANY-GB201106003188

PATIENT
  Sex: Female
  Weight: 70 kg

DRUGS (1)
  1. XIGRIS [Suspect]
     Indication: SEPSIS
     Dosage: UNK, UNKNOWN
     Route: 065

REACTIONS (2)
  - SUBARACHNOID HAEMORRHAGE [None]
  - UTERINE PERFORATION [None]
